FAERS Safety Report 16811003 (Version 2)
Quarter: 2019Q4

REPORT INFORMATION
  Report Type: Spontaneous
  Country: AU (occurrence: AU)
  Receive Date: 20190916
  Receipt Date: 20191015
  Transmission Date: 20200122
  Serious: Yes (Life-Threatening, Other)
  Sender: FDA-Public Use
  Company Number: AU-EMD SERONO-9116786

PATIENT
  Age: 65 Year
  Sex: Male
  Weight: 115 kg

DRUGS (4)
  1. LORATADINE. [Concomitant]
     Active Substance: LORATADINE
     Indication: PREMEDICATION
  2. BAVENCIO [Suspect]
     Active Substance: AVELUMAB
     Indication: NEUROENDOCRINE CARCINOMA OF THE SKIN
     Dosage: 1200 (UNSPECIFIED UNITS)
     Route: 042
     Dates: start: 20190827
  3. HYDROCORT                          /00028602/ [Concomitant]
     Indication: PREMEDICATION
  4. PARACETAMOL [Concomitant]
     Active Substance: ACETAMINOPHEN
     Indication: PREMEDICATION

REACTIONS (8)
  - Back pain [Recovering/Resolving]
  - Hypotension [Recovering/Resolving]
  - Pallor [Recovering/Resolving]
  - Cold sweat [Recovering/Resolving]
  - Renal pain [Recovering/Resolving]
  - Nausea [Recovering/Resolving]
  - Dizziness [Recovering/Resolving]
  - Hyperhidrosis [Recovering/Resolving]

NARRATIVE: CASE EVENT DATE: 20190910
